FAERS Safety Report 6595260-5 (Version None)
Quarter: 2010Q1

REPORT INFORMATION
  Report Type: 
  Country: None (occurrence: None)
  Receive Date: 20100212
  Receipt Date: 20100127
  Transmission Date: 20100710
  Serious: Yes (Hospitalization)
  Sender: FDA-Public Use
  Company Number: 234990J09USA

PATIENT
  Age: 39 Year
  Sex: Female

DRUGS (3)
  1. REBIF [Suspect]
     Indication: MULTIPLE SCLEROSIS
     Dosage: 44 MCG, 3 IN 1 WEEKS, SUBCUTANEOUS
     Route: 058
     Dates: start: 20091013, end: 20091230
  2. FLEXERIL [Concomitant]
  3. CLONOPIN [Concomitant]

REACTIONS (14)
  - ABDOMINAL DISTENSION [None]
  - ANAEMIA [None]
  - EYE SWELLING [None]
  - GAIT DISTURBANCE [None]
  - HYPERSENSITIVITY [None]
  - HYPERTENSION [None]
  - INFLUENZA LIKE ILLNESS [None]
  - INJECTION SITE ERYTHEMA [None]
  - MENORRHAGIA [None]
  - NEPHROPATHY [None]
  - OEDEMA [None]
  - PAIN [None]
  - RENAL FAILURE [None]
  - SWELLING FACE [None]
